FAERS Safety Report 11792745 (Version 1)
Quarter: 2015Q4

REPORT INFORMATION
  Report Type: Spontaneous
  Country: GB (occurrence: None)
  Receive Date: 20151130
  Receipt Date: 20151130
  Transmission Date: 20160305
  Serious: Yes (Hospitalization)
  Sender: FDA-Public Use
  Company Number: 2015RR-106590

PATIENT
  Age: 87 Year
  Sex: Male

DRUGS (6)
  1. BETAMETHASONE CREAM 0.5 PERCENT WITH VITAMIN D [Concomitant]
     Active Substance: BETAMETHASONE\CALCIPOTRIENE
  2. WARFARIN (WARFARIN) UNKNOWN [Suspect]
     Active Substance: WARFARIN
     Indication: ATRIAL FIBRILLATION
  3. CLARITHROMYCIN (CLARITHROMYCIN) UNKNOWN [Suspect]
     Active Substance: CLARITHROMYCIN
     Indication: RASH GENERALISED
     Route: 048
     Dates: start: 20151002, end: 20151009
  4. ALLOPURINOL. [Concomitant]
     Active Substance: ALLOPURINOL
  5. BALNEUM PLUS CREAM (UREA, LAUROMACROGOLS) CREAM [Concomitant]
  6. DIGOXIN. [Concomitant]
     Active Substance: DIGOXIN

REACTIONS (3)
  - Haematuria [None]
  - Labelled drug-drug interaction medication error [None]
  - Haemoglobin decreased [None]

NARRATIVE: CASE EVENT DATE: 20151009
